FAERS Safety Report 6898981-X (Version None)
Quarter: 2010Q3

REPORT INFORMATION
  Report Type: 
  Country: None (occurrence: None)
  Receive Date: 20100802
  Receipt Date: 20071205
  Transmission Date: 20110219
  Serious: No
  Sender: FDA-Public Use
  Company Number: US-PFIZER INC-2007103215

PATIENT
  Sex: Male

DRUGS (6)
  1. LYRICA [Suspect]
     Indication: PAIN
     Dates: start: 20070718, end: 20071101
  2. PREDNISONE TAB [Suspect]
     Indication: RASH
  3. PREDNISONE TAB [Suspect]
     Indication: PRURITUS
  4. CLONAZEPAM [Concomitant]
  5. REMERON [Concomitant]
  6. VYTORIN [Concomitant]

REACTIONS (3)
  - DRUG INEFFECTIVE [None]
  - PRURITUS [None]
  - RASH [None]
